FAERS Safety Report 8972310 (Version 1)
Quarter: 2012Q4

REPORT INFORMATION
  Report Type: 
  Country: GB (occurrence: GB)
  Receive Date: 20121219
  Receipt Date: 20121219
  Transmission Date: 20130627
  Serious: Yes (Hospitalization, Other)
  Sender: FDA-Public Use
  Company Number: GB-ROXANE LABORATORIES, INC.-2012-RO-02593RO

PATIENT
  Age: 35 Year
  Sex: Female

DRUGS (3)
  1. AZATHIOPRINE [Suspect]
     Indication: POLYMYOSITIS
  2. STEROIDS [Suspect]
     Indication: POLYMYOSITIS
  3. ENOXAPARIN [Suspect]
     Indication: THROMBOCYTOSIS

REACTIONS (5)
  - Thrombocytosis [Recovered/Resolved]
  - Pulmonary hypertension [Recovered/Resolved]
  - Premature rupture of membranes [Recovered/Resolved]
  - Hepatotoxicity [Recovered/Resolved]
  - Oligohydramnios [Unknown]
